FAERS Safety Report 21457038 (Version 3)
Quarter: 2024Q2

REPORT INFORMATION
  Report Type: Spontaneous
  Country: FR (occurrence: FR)
  Receive Date: 20221014
  Receipt Date: 20240523
  Transmission Date: 20240716
  Serious: Yes (Other)
  Sender: FDA-Public Use
  Company Number: None

PATIENT
  Age: 3 Year
  Sex: Female
  Weight: 16.6 kg

DRUGS (36)
  1. BUSULFAN [Suspect]
     Active Substance: BUSULFAN
     Indication: Still^s disease
     Dosage: AUC OF 25,638 MICROM/MIN
  2. METHOTREXATE [Suspect]
     Active Substance: METHOTREXATE
     Indication: Still^s disease
     Dosage: 5 MG/WEEK
  3. FLUDARABINE [Suspect]
     Active Substance: FLUDARABINE PHOSPHATE
     Indication: Still^s disease
     Dosage: 160 MG/M2
  4. THALIDOMIDE [Suspect]
     Active Substance: THALIDOMIDE
     Indication: Still^s disease
     Dosage: 50 MG/DAY
  5. MYCOPHENOLATE MOFETIL [Suspect]
     Active Substance: MYCOPHENOLATE MOFETIL
     Indication: Prophylaxis against transplant rejection
  6. CYCLOPHOSPHAMIDE [Suspect]
     Active Substance: CYCLOPHOSPHAMIDE
     Indication: Prophylaxis against graft versus host disease
     Dosage: ON DAY +3 AND +4
  7. ADALIMUMAB [Suspect]
     Active Substance: ADALIMUMAB\ISOPROPYL ALCOHOL
     Indication: Still^s disease
  8. ALEMTUZUMAB [Suspect]
     Active Substance: ALEMTUZUMAB
     Indication: Still^s disease
     Dosage: 0.5 MG/KG
  9. ANAKINRA [Suspect]
     Active Substance: ANAKINRA
     Indication: Still^s disease
  10. INDOMETHACIN [Suspect]
     Active Substance: INDOMETHACIN
     Indication: Still^s disease
     Dosage: 25 MG/M2, QD
  11. INFLIXIMAB [Suspect]
     Active Substance: INFLIXIMAB
     Indication: Graft versus host disease in gastrointestinal tract
     Dosage: FOR GRADE III GASTROINTESTINAL GVHD
  12. PREDNISOLONE [Suspect]
     Active Substance: PREDNISOLONE
     Indication: Still^s disease
     Dosage: 1 MG/KG PER DAY, TAPERED
  13. PENICILLIN V [Suspect]
     Active Substance: PENICILLIN V
     Indication: Prophylaxis
  14. METHYLPREDNISOLONE [Suspect]
     Active Substance: METHYLPREDNISOLONE
     Indication: Still^s disease
  15. RITUXIMAB [Suspect]
     Active Substance: RITUXIMAB
     Indication: Still^s disease
     Dosage: 375 MG/M2
  16. CYCLOSPORINE [Suspect]
     Active Substance: CYCLOSPORINE
     Indication: Prophylaxis against graft versus host disease
     Dosage: ON DAY 5
  17. CYCLOPHOSPHAMIDE [Concomitant]
     Active Substance: CYCLOPHOSPHAMIDE
     Indication: Prophylaxis against graft versus host disease
     Dosage: 50 MG/KG DAY 3 AND 4
  18. TOCILIZUMAB [Concomitant]
     Active Substance: TOCILIZUMAB
     Indication: Still^s disease
  19. RITUXIMAB [Concomitant]
     Active Substance: RITUXIMAB
     Indication: Bone marrow conditioning regimen
     Dosage: 375 MG/M2
  20. ALEMTUZUMAB [Concomitant]
     Active Substance: ALEMTUZUMAB
     Indication: Still^s disease
     Dosage: 0.5 MG/KG
  21. MYCOPHENOLATE MOFETIL [Concomitant]
     Active Substance: MYCOPHENOLATE MOFETIL
     Indication: Prophylaxis against graft versus host disease
     Dosage: ON DAY 5
  22. CANAKINUMAB [Concomitant]
     Active Substance: CANAKINUMAB
     Indication: Still^s disease
  23. ANAKINRA [Concomitant]
     Active Substance: ANAKINRA
     Indication: Still^s disease
  24. BUSULFAN [Concomitant]
     Active Substance: BUSULFAN
     Indication: Bone marrow conditioning regimen
     Dosage: AUC OF 25,638 MICROM/MIN
  25. FLUDARABINE [Concomitant]
     Active Substance: FLUDARABINE PHOSPHATE
     Indication: Bone marrow conditioning regimen
     Dosage: 160 MG/M2
  26. ORACILLIN [Concomitant]
  27. HYDROCORTISONE [Concomitant]
     Active Substance: HYDROCORTISONE
  28. ACYCLOVIR [Concomitant]
     Active Substance: ACYCLOVIR
  29. ADALIMUMAB [Concomitant]
     Active Substance: ADALIMUMAB\ISOPROPYL ALCOHOL
  30. BUSULFAN [Suspect]
     Active Substance: BUSULFAN
     Indication: Bone marrow conditioning regimen
     Dosage: AUC OF 25,638 MICROM/MIN
  31. FLUDARABINE [Suspect]
     Active Substance: FLUDARABINE PHOSPHATE
     Indication: Bone marrow conditioning regimen
     Dosage: 160 MG/M2
  32. INFLIXIMAB [Suspect]
     Active Substance: INFLIXIMAB
     Indication: Still^s disease
     Dosage: 75 MG/ 4 WEEKS
  33. METHOTREXATE [Suspect]
     Active Substance: METHOTREXATE
     Indication: Prophylaxis against transplant rejection
     Dosage: 5 MG/WEEK
  34. RITUXIMAB [Suspect]
     Active Substance: RITUXIMAB
     Indication: Bone marrow conditioning regimen
     Dosage: 375 MG/M2
  35. ALEMTUZUMAB [Concomitant]
     Active Substance: ALEMTUZUMAB
     Indication: Bone marrow conditioning regimen
     Dosage: 0.5 MG/KG
  36. ANAKINRA [Suspect]
     Active Substance: ANAKINRA
     Indication: Still^s disease

REACTIONS (39)
  - Impaired quality of life [Unknown]
  - Congenital aplasia [Recovered/Resolved]
  - Hypertension [Unknown]
  - Cellulitis staphylococcal [Unknown]
  - Herpes zoster infection neurological [Unknown]
  - Obliterative bronchiolitis [Recovered/Resolved]
  - Graft versus host disease in skin [Recovering/Resolving]
  - Still^s disease [Recovering/Resolving]
  - Lung disorder [Recovered/Resolved]
  - Toxicity to various agents [Unknown]
  - Immune thrombocytopenia [Recovering/Resolving]
  - Autoimmune thyroiditis [Unknown]
  - Condition aggravated [Unknown]
  - Joint effusion [Recovered/Resolved]
  - Osteopenia [Unknown]
  - Hepatic cytolysis [Unknown]
  - Red blood cell sedimentation rate increased [Unknown]
  - C-reactive protein increased [Unknown]
  - Hypothyroidism [Unknown]
  - Arthralgia [Unknown]
  - Cushingoid [Unknown]
  - Focal nodular hyperplasia [Unknown]
  - Secondary adrenocortical insufficiency [Unknown]
  - Ill-defined disorder [Unknown]
  - Actinomycotic sepsis [Unknown]
  - Graft versus host disease in gastrointestinal tract [Recovered/Resolved]
  - Acute graft versus host disease in skin [Recovering/Resolving]
  - Vitiligo [Unknown]
  - Thrombocytopenia [Unknown]
  - Drug resistance [Unknown]
  - Herpes zoster [Unknown]
  - Pulmonary function test abnormal [Recovered/Resolved]
  - Growth retardation [Recovering/Resolving]
  - Inflammation [Unknown]
  - Clostridium difficile colitis [Recovered/Resolved]
  - Infection [Unknown]
  - Varicella zoster virus infection [Unknown]
  - Bacterial sepsis [Unknown]
  - Hyperplasia [Unknown]
